FAERS Safety Report 9606410 (Version 1)
Quarter: 2013Q4

REPORT INFORMATION
  Report Type: Spontaneous
  Country: US (occurrence: US)
  Receive Date: 20131008
  Receipt Date: 20131008
  Transmission Date: 20140711
  Serious: No
  Sender: FDA-Public Use
  Company Number: US-AMGEN-USASP2013052669

PATIENT
  Age: 78 Year
  Sex: Female

DRUGS (4)
  1. PROLIA [Suspect]
     Indication: OSTEOPOROSIS POSTMENOPAUSAL
     Dosage: UNK
     Route: 065
     Dates: start: 201301
  2. TOPAMAX [Concomitant]
  3. PRILOSEC                           /00661201/ [Concomitant]
     Dosage: 1/2 TABLET
  4. ASPIRIN [Concomitant]
     Dosage: UNK UNK, QD

REACTIONS (3)
  - Pain in jaw [Unknown]
  - Heart rate increased [Unknown]
  - Dyspnoea [Unknown]
